FAERS Safety Report 23975570 (Version 1)
Quarter: 2024Q2

REPORT INFORMATION
  Report Type: Spontaneous
  Country: US (occurrence: US)
  Receive Date: 20240614
  Receipt Date: 20240614
  Transmission Date: 20240715
  Serious: No
  Sender: FDA-Public Use
  Company Number: US-UCBSA-2024024472

PATIENT
  Sex: Female

DRUGS (1)
  1. BIMZELX [Suspect]
     Active Substance: BIMEKIZUMAB-BKZX
     Indication: Psoriasis
     Dosage: 320 MILLIGRAM, EV 4 WEEKS FOR 16 WEEKS THEN 2 PENS EVERY 8 WEEKS THEREAFTER.
     Route: 058
     Dates: start: 202403

REACTIONS (3)
  - Oral candidiasis [Unknown]
  - Constipation [Unknown]
  - Odynophagia [Unknown]

NARRATIVE: CASE EVENT DATE: 20240101
